FAERS Safety Report 25190238 (Version 1)
Quarter: 2025Q2

REPORT INFORMATION
  Report Type: Spontaneous
  Country: FR (occurrence: FR)
  Receive Date: 20250411
  Receipt Date: 20250411
  Transmission Date: 20250717
  Serious: Yes (Other)
  Sender: OTSUKA
  Company Number: FR-MMM-Otsuka-YLRBGQEF

PATIENT
  Age: 61 Year
  Sex: Female

DRUGS (2)
  1. ABILIFY [Suspect]
     Active Substance: ARIPIPRAZOLE
     Indication: Depression
     Route: 048
     Dates: end: 202503
  2. ABILIFY [Suspect]
     Active Substance: ARIPIPRAZOLE
     Route: 048

REACTIONS (8)
  - Impaired quality of life [Unknown]
  - Adverse drug reaction [Unknown]
  - Anger [Unknown]
  - Aggression [Not Recovered/Not Resolved]
  - Gambling disorder [Recovered/Resolved]
  - Impulse-control disorder [Recovered/Resolved]
  - Wrong technique in product usage process [Unknown]
  - Off label use [Unknown]
